FAERS Safety Report 9752351 (Version 1)
Quarter: 2013Q4

REPORT INFORMATION
  Report Type: Spontaneous
  Country: US (occurrence: US)
  Receive Date: 20131213
  Receipt Date: 20131213
  Transmission Date: 20140711
  Serious: No
  Sender: FDA-Public Use
  Company Number: US-PFIZER INC-2013356029

PATIENT
  Sex: Female

DRUGS (1)
  1. QUILLIVANT XR [Suspect]
     Dosage: 25 MG, UNK

REACTIONS (1)
  - Drug ineffective [Unknown]
